FAERS Safety Report 4367915-4 (Version None)
Quarter: 2004Q2

REPORT INFORMATION
  Report Type: 
  Country: None (occurrence: None)
  Receive Date: 20040527
  Receipt Date: 20040426
  Transmission Date: 20050107
  Serious: Yes (Other)
  Sender: FDA-Public Use
  Company Number: 206093

PATIENT
  Age: 54 Year
  Sex: Female
  Weight: 135.5 kg

DRUGS (1)
  1. RAPTIVA [Suspect]
     Indication: PSORIASIS
     Dosage: 1.2 ML, 1/WEEK, SUBCUTANEOUS
     Route: 058
     Dates: start: 20021007

REACTIONS (1)
  - SQUAMOUS CELL CARCINOMA [None]
